FAERS Safety Report 25366736 (Version 1)
Quarter: 2025Q2

REPORT INFORMATION
  Report Type: Spontaneous
  Country: TW (occurrence: TW)
  Receive Date: 20250528
  Receipt Date: 20250528
  Transmission Date: 20250716
  Serious: Yes (Hospitalization, Other)
  Sender: BOEHRINGER INGELHEIM
  Company Number: TW-BoehringerIngelheim-2025-BI-072515

PATIENT
  Age: 82 Year
  Sex: Female
  Weight: 53.2 kg

DRUGS (18)
  1. LINAGLIPTIN [Suspect]
     Active Substance: LINAGLIPTIN
     Indication: Hyperglycaemia
     Dates: start: 20230705, end: 20231105
  2. LINAGLIPTIN [Suspect]
     Active Substance: LINAGLIPTIN
     Dates: start: 20240104, end: 20240531
  3. AMOXICILLIN\CLAVULANIC ACID [Suspect]
     Active Substance: AMOXICILLIN\CLAVULANIC ACID
     Indication: Wound infection
  4. AMOXICILLIN SODIUM [Suspect]
     Active Substance: AMOXICILLIN SODIUM
     Indication: Wound infection
  5. ACTOS [Concomitant]
     Active Substance: PIOGLITAZONE HYDROCHLORIDE
     Indication: Hyperglycaemia
     Dates: start: 20240104, end: 20240201
  6. All-Right Calcium Suspension [Concomitant]
     Indication: Mineral supplementation
  7. GLIMEPIRIDE [Concomitant]
     Active Substance: GLIMEPIRIDE
     Indication: Hyperglycaemia
  8. CEFADROXIL [Concomitant]
     Active Substance: CEFADROXIL
     Dosage: 500 MG 2.0CAP BID
  9. COMBIGAN [Concomitant]
     Active Substance: BRIMONIDINE TARTRATE\TIMOLOL MALEATE
     Indication: Ocular hypertension
  10. MINERAL OIL DURATEARS STERILE OPH OINT [Concomitant]
     Indication: Dry eye
  11. FAMOTIDINE [Concomitant]
     Active Substance: FAMOTIDINE
     Indication: Gastrointestinal disorder prophylaxis
  12. METHYLCOBALAMIN [Concomitant]
     Active Substance: METHYLCOBALAMIN
     Indication: Neuralgia
  13. MOSAPRIDE CITRATE DIHYDRATE [Concomitant]
     Active Substance: MOSAPRIDE CITRATE DIHYDRATE
     Indication: Dyspepsia
  14. PLAVIX [Concomitant]
     Active Substance: CLOPIDOGREL BISULFATE
     Indication: Cerebrovascular accident
  15. PROLIA [Concomitant]
     Active Substance: DENOSUMAB
     Indication: Osteoporosis
  16. RYZODEG 70/30 [Concomitant]
     Active Substance: INSULIN ASPART\INSULIN DEGLUDEC
     Indication: Hyperglycaemia
  17. SENNOSIDES [Concomitant]
     Active Substance: SENNOSIDES
     Indication: Faeces soft
  18. TOUJEO [Concomitant]
     Active Substance: INSULIN GLARGINE
     Indication: Hyperglycaemia

REACTIONS (7)
  - Wound infection [Recovered/Resolved]
  - Impaired healing [Recovered/Resolved]
  - Abdominal distension [Recovered/Resolved]
  - Wound complication [Recovered/Resolved]
  - Dermatitis bullous [Unknown]
  - Weight increased [Not Recovered/Not Resolved]
  - Vaginal discharge [Not Recovered/Not Resolved]

NARRATIVE: CASE EVENT DATE: 20231106
